FAERS Safety Report 19128917 (Version 1)
Quarter: 2021Q2

REPORT INFORMATION
  Report Type: Spontaneous
  Country: CA (occurrence: CA)
  Receive Date: 20210413
  Receipt Date: 20210413
  Transmission Date: 20210717
  Serious: Yes (Hospitalization)
  Sender: FDA-Public Use
  Company Number: CA-PFIZER INC-2021353144

PATIENT
  Age: 79 Year
  Sex: Male
  Weight: 69 kg

DRUGS (20)
  1. DOXORUBICIN HCL [Suspect]
     Active Substance: DOXORUBICIN HYDROCHLORIDE
     Indication: NON-HODGKIN^S LYMPHOMA
  2. CYCLOPHOSPHAMIDE. [Suspect]
     Active Substance: CYCLOPHOSPHAMIDE
     Indication: NON-HODGKIN^S LYMPHOMA
  3. MONOCOR [Concomitant]
     Active Substance: BISOPROLOL FUMARATE
  4. AVODART [Concomitant]
     Active Substance: DUTASTERIDE
  5. CRESTOR [Concomitant]
     Active Substance: ROSUVASTATIN CALCIUM
  6. LAX?A?DAY [Concomitant]
     Active Substance: POLYETHYLENE GLYCOL 3350
  7. NORVASC [Concomitant]
     Active Substance: AMLODIPINE BESYLATE
  8. EZETROL [Concomitant]
     Active Substance: EZETIMIBE
  9. FLOMAX [Concomitant]
     Active Substance: TAMSULOSIN HYDROCHLORIDE
  10. FRAGMIN [Concomitant]
     Active Substance: DALTEPARIN SODIUM
  11. ASA [Concomitant]
     Active Substance: ASPIRIN
  12. GRASTOFIL [Concomitant]
     Active Substance: FILGRASTIM
  13. NYSTATIN. [Concomitant]
     Active Substance: NYSTATIN
  14. NITRO [GLYCERYL TRINITRATE] [Concomitant]
     Active Substance: NITROGLYCERIN
  15. PANTOLOC [PANTOPRAZOLE] [Concomitant]
     Active Substance: PANTOPRAZOLE SODIUM
  16. VINCRISTINE SULFATE. [Suspect]
     Active Substance: VINCRISTINE SULFATE
     Indication: NON-HODGKIN^S LYMPHOMA
  17. PREDNISONE. [Suspect]
     Active Substance: PREDNISONE
     Indication: NON-HODGKIN^S LYMPHOMA
  18. TYLENOL [Concomitant]
     Active Substance: ACETAMINOPHEN
  19. RITUXAN [Suspect]
     Active Substance: RITUXIMAB
     Indication: NON-HODGKIN^S LYMPHOMA
  20. STEMETIL [PROCHLORPERAZINE] [Concomitant]
     Active Substance: PROCHLORPERAZINE

REACTIONS (3)
  - Neutropenia [Unknown]
  - Hyperthermia [Unknown]
  - Urinary tract infection [Unknown]
